FAERS Safety Report 10215545 (Version 1)
Quarter: 2014Q2

REPORT INFORMATION
  Report Type: Spontaneous
  Country: US (occurrence: US)
  Receive Date: 20140604
  Receipt Date: 20140604
  Transmission Date: 20141212
  Serious: Yes (Hospitalization)
  Sender: FDA-Public Use
  Company Number: US-BIOGENIDEC-2014BI050655

PATIENT
  Age: 66 Year
  Sex: Female

DRUGS (4)
  1. TECFIDERA [Suspect]
     Indication: MULTIPLE SCLEROSIS
     Route: 048
     Dates: start: 20140211
  2. CRANBERRY PLUS VITAMIN C [Concomitant]
  3. CELEBREX [Concomitant]
  4. CALCIUM+D [Concomitant]

REACTIONS (2)
  - Joint injury [Unknown]
  - Fall [Recovered/Resolved]
